FAERS Safety Report 11410383 (Version 1)
Quarter: 2015Q3

REPORT INFORMATION
  Report Type: Spontaneous
  Country: US (occurrence: US)
  Receive Date: 20150824
  Receipt Date: 20150824
  Transmission Date: 20151125
  Serious: Yes (Other)
  Sender: FDA-Public Use
  Company Number: PHEH2015US016155

PATIENT

DRUGS (4)
  1. DIOVAN [Suspect]
     Active Substance: VALSARTAN
     Dosage: 150 MG, UNK
     Route: 065
  2. DIOVAN [Suspect]
     Active Substance: VALSARTAN
     Dosage: 230 MG, (TOOK 150 MG PLUS 80 MG TOGETHER)
     Route: 065
  3. DIOVAN [Suspect]
     Active Substance: VALSARTAN
     Dosage: 240 MG, (TOOK 3, 80 MG DIOVAN0
     Route: 048
  4. DIOVAN [Suspect]
     Active Substance: VALSARTAN
     Indication: PRODUCT USED FOR UNKNOWN INDICATION
     Dosage: 80 MG, UNK
     Route: 065

REACTIONS (2)
  - Fear [Unknown]
  - Blood pressure increased [Unknown]
